FAERS Safety Report 7385670-0 (Version None)
Quarter: 2011Q1

REPORT INFORMATION
  Report Type: 
  Country: None (occurrence: None)
  Receive Date: 20110331
  Receipt Date: 20110322
  Transmission Date: 20110831
  Serious: No
  Sender: FDA-Public Use
  Company Number: US-BIOGENIDEC-2011BI011202

PATIENT
  Age: 54 Year
  Sex: Female

DRUGS (2)
  1. AVONEX [Suspect]
     Indication: MULTIPLE SCLEROSIS
     Route: 030
     Dates: start: 20030101
  2. AVONEX [Suspect]
     Route: 030
     Dates: end: 20030101

REACTIONS (3)
  - ERYTHEMA [None]
  - MUSCLE SWELLING [None]
  - MYALGIA [None]
